FAERS Safety Report 5159198-2 (Version None)
Quarter: 2006Q4

REPORT INFORMATION
  Report Type: 
  Country: None (occurrence: None)
  Receive Date: 20061120
  Receipt Date: 20061102
  Transmission Date: 20070319
  Serious: Yes (Other)
  Sender: FDA-Public Use
  Company Number: DSA_28954_2006

PATIENT
  Age: 14 Year

DRUGS (2)
  1. ENALAPRIL MALEATE [Suspect]
     Dosage: 2.5 MG BID PO
     Route: 048
  2. ENALAPRIL MALEATE [Suspect]
     Dosage: 5 MG, Q DAY PO
     Route: 048

REACTIONS (1)
  - VISUAL ACUITY REDUCED TRANSIENTLY [None]
